FAERS Safety Report 26059805 (Version 1)
Quarter: 2025Q4

REPORT INFORMATION
  Report Type: Report from Study
  Country: KR (occurrence: KR)
  Receive Date: 20251118
  Receipt Date: 20251118
  Transmission Date: 20260117
  Serious: Yes (Death, Other)
  Sender: PFIZER
  Company Number: KR-PFIZER INC-202500224695

PATIENT

DRUGS (4)
  1. CARBOPLATIN [Suspect]
     Active Substance: CARBOPLATIN
     Indication: Small cell lung cancer extensive stage
     Dosage: 5 MG/ML/MIN, ON DAY 1, CYCLIC, FOUR 21-DAY CYCLES
     Route: 042
  2. ETOPOSIDE [Suspect]
     Active Substance: ETOPOSIDE
     Indication: Small cell lung cancer extensive stage
     Dosage: 100 MG/M2 CYCLIC ON DAYS 1-3
     Route: 042
  3. ATEZOLIZUMAB [Suspect]
     Active Substance: ATEZOLIZUMAB
     Indication: Small cell lung cancer extensive stage
     Dosage: 1200 MG, CYCLIC, ON DAY 1 OF EACH CYCLE
     Route: 042
  4. ATEZOLIZUMAB [Suspect]
     Active Substance: ATEZOLIZUMAB
     Dosage: 1200 MG, CYCLIC, CYCLE 5 ONWARD, MAINTENANCE, EVERY 21 DAYS
     Route: 042

REACTIONS (3)
  - Septic shock [Fatal]
  - Neutropenia [Fatal]
  - Immune-mediated hepatitis [Fatal]
